FAERS Safety Report 5173188-5 (Version None)
Quarter: 2006Q4

REPORT INFORMATION
  Report Type: 
  Country: None (occurrence: None)
  Receive Date: 20061214
  Receipt Date: 20061208
  Transmission Date: 20070319
  Serious: Yes (Hospitalization)
  Sender: FDA-Public Use
  Company Number: CA-BAYER-200616286GDS

PATIENT
  Age: 53 Year
  Sex: Male
  Weight: 75 kg

DRUGS (5)
  1. NEXAVAR [Suspect]
     Indication: SARCOMA
     Dosage: TOTAL DAILY DOSE: 800 MG
     Route: 048
     Dates: start: 20061027, end: 20061030
  2. NEXAVAR [Suspect]
     Dosage: TOTAL DAILY DOSE: 200 MG
     Route: 048
     Dates: start: 20061101, end: 20061102
  3. NEXAVAR [Suspect]
     Dosage: TOTAL DAILY DOSE: 400 MG
     Route: 048
     Dates: start: 20061103, end: 20061104
  4. NEXAVAR [Suspect]
     Dosage: TOTAL DAILY DOSE: 600 MG
     Route: 048
     Dates: start: 20061105, end: 20061107
  5. NEXAVAR [Suspect]
     Dosage: TOTAL DAILY DOSE: 200 MG
     Route: 048
     Dates: start: 20061109

REACTIONS (2)
  - ABDOMINAL PAIN [None]
  - LEUKOCYTOSIS [None]
